FAERS Safety Report 8646014 (Version 6)
Quarter: 2013Q3

REPORT INFORMATION
  Report Type: Spontaneous
  Country: US (occurrence: US)
  Receive Date: 20120702
  Receipt Date: 20130809
  Transmission Date: 20140515
  Serious: Yes (Disabling, Other)
  Sender: FDA-Public Use
  Company Number: US-009507513-1206USA04952

PATIENT
  Sex: Female
  Weight: 53.52 kg

DRUGS (22)
  1. FOSAMAX [Suspect]
     Indication: OSTEOPOROSIS
     Dosage: 10 MG, QD
     Route: 048
     Dates: start: 199801
  2. FOSAMAX [Suspect]
     Indication: OSTEOPENIA
     Dosage: 70 MG, QW
     Route: 048
     Dates: end: 200712
  3. FORTEO [Concomitant]
     Indication: OSTEOPOROSIS
     Dosage: UNK
     Route: 030
     Dates: start: 200712, end: 201009
  4. FORTEO [Concomitant]
     Indication: OSTEOPENIA
  5. LOTENSIN (CAPTOPRIL) [Concomitant]
     Indication: HYPERTENSION
     Dosage: 10 MG, QD
     Dates: start: 19960521
  6. AMBIEN [Concomitant]
     Indication: FIBROMYALGIA
     Dosage: 5-10 MG PRN
     Route: 048
  7. AMBIEN [Concomitant]
     Indication: SLEEP DISORDER
  8. FLEXERIL [Concomitant]
     Indication: FIBROMYALGIA
     Dosage: 1/4-1/2 TAB HS
  9. CALCIUM (UNSPECIFIED) [Concomitant]
     Indication: OSTEOPOROSIS
  10. VITAMIN D (UNSPECIFIED) [Concomitant]
     Indication: OSTEOPOROSIS
     Dosage: UNK
  11. NASONEX [Concomitant]
     Indication: RHINITIS ALLERGIC
  12. NASONEX [Concomitant]
     Indication: UPPER-AIRWAY COUGH SYNDROME
  13. CLINORIL [Concomitant]
     Indication: FIBROMYALGIA
     Dosage: UNK
     Dates: end: 19980818
  14. KLONOPIN [Concomitant]
     Indication: FIBROMYALGIA
     Dosage: .5 MG, HS
     Route: 048
  15. KLONOPIN [Concomitant]
     Indication: SLEEP DISORDER
  16. PROGESTERONE [Concomitant]
     Indication: OSTEOPOROSIS
  17. PROGESTERONE [Concomitant]
     Indication: HORMONE REPLACEMENT THERAPY
  18. VITAMIN B (UNSPECIFIED) [Concomitant]
     Indication: OSTEOPENIA
  19. PREVACID [Concomitant]
     Indication: GASTROOESOPHAGEAL REFLUX DISEASE
     Dosage: 30 MG, UNK
     Route: 048
  20. DIOVAN [Concomitant]
     Indication: HYPERTENSION
     Dosage: 80-160 MG QHS
     Route: 048
  21. HORMONES (UNSPECIFIED) [Concomitant]
     Dosage: UNK
     Dates: start: 1995, end: 2000
  22. LANSOPRAZOLE [Concomitant]
     Dosage: UNK
     Dates: start: 1998

REACTIONS (42)
  - Femur fracture [Not Recovered/Not Resolved]
  - Femur fracture [Not Recovered/Not Resolved]
  - Low turnover osteopathy [Not Recovered/Not Resolved]
  - Osteoporosis [Not Recovered/Not Resolved]
  - Femur fracture [Unknown]
  - Stress fracture [Not Recovered/Not Resolved]
  - Inguinal hernia repair [Unknown]
  - Inguinal hernia repair [Unknown]
  - Adenoidectomy [Unknown]
  - Tonsillectomy [Unknown]
  - Tooth disorder [Unknown]
  - Oral herpes [Unknown]
  - Fracture [Unknown]
  - Foot fracture [Unknown]
  - Patella fracture [Unknown]
  - Arthropathy [Unknown]
  - Fracture nonunion [Unknown]
  - Foot fracture [Unknown]
  - Adverse drug reaction [Unknown]
  - Staphylococcal infection [Unknown]
  - Spinal osteoarthritis [Unknown]
  - Back injury [Unknown]
  - Spinal pain [Unknown]
  - Hypercholesterolaemia [Unknown]
  - Haemangioma of liver [Unknown]
  - Joint injury [Unknown]
  - Hypotension [Unknown]
  - Bone disorder [Unknown]
  - Joint instability [Unknown]
  - Adverse event [Unknown]
  - Spinal osteoarthritis [Not Recovered/Not Resolved]
  - Spinal osteoarthritis [Not Recovered/Not Resolved]
  - Calcium deficiency [Unknown]
  - Ventricular extrasystoles [Unknown]
  - Spinal osteoarthritis [Unknown]
  - Pain [Unknown]
  - Underweight [Not Recovered/Not Resolved]
  - Vitamin D deficiency [Unknown]
  - Sinus disorder [Unknown]
  - Fall [Unknown]
  - Constipation [Unknown]
  - Dizziness [Unknown]
